FAERS Safety Report 25139001 (Version 1)
Quarter: 2025Q1

REPORT INFORMATION
  Report Type: Spontaneous
  Country: US (occurrence: US)
  Receive Date: 20250331
  Receipt Date: 20250331
  Transmission Date: 20250409
  Serious: Yes (Other)
  Sender: TEVA
  Company Number: US-TEVA-VS-3244690

PATIENT
  Age: 78 Year
  Sex: Female

DRUGS (2)
  1. AUSTEDO [Suspect]
     Active Substance: DEUTETRABENAZINE
     Indication: Tardive dyskinesia
     Route: 048
     Dates: start: 202404
  2. AUSTEDO [Suspect]
     Active Substance: DEUTETRABENAZINE
     Indication: Tardive dyskinesia
     Route: 048

REACTIONS (5)
  - Rehabilitation therapy [Unknown]
  - Mastication disorder [Unknown]
  - Off label use [Unknown]
  - Pain in jaw [Unknown]
  - Tremor [Unknown]

NARRATIVE: CASE EVENT DATE: 20240101
